FAERS Safety Report 18285997 (Version 2)
Quarter: 2020Q4

REPORT INFORMATION
  Report Type: Spontaneous
  Country: FR (occurrence: FR)
  Receive Date: 20200919
  Receipt Date: 20201019
  Transmission Date: 20210113
  Serious: Yes (Other)
  Sender: FDA-Public Use
  Company Number: FR-TEVA-2020-FR-1828387

PATIENT
  Age: 84 Year
  Sex: Female
  Weight: 68 kg

DRUGS (6)
  1. SOTALOL (CHLORHYDRATE DE) [Concomitant]
     Active Substance: SOTALOL
     Indication: HYPERTENSION
     Route: 048
  2. IRBESARTAN (CHLORHYDRATE D) [Suspect]
     Active Substance: IRBESARTAN
     Indication: HYPERTENSION
     Dosage: 300 MG
     Route: 048
     Dates: end: 20200701
  3. LEXOMIL [Concomitant]
     Active Substance: BROMAZEPAM
     Dosage: 0.5 DOSAGE FORMS
     Route: 048
  4. LERCANIDIPINE (CHLORHYDRATE DE) [Concomitant]
     Active Substance: LERCANIDIPINE HYDROCHLORIDE
     Dosage: 20 MG
     Route: 048
     Dates: start: 20200622
  5. HYDROCHLOROTHIAZIDE. [Suspect]
     Active Substance: HYDROCHLOROTHIAZIDE
     Indication: HYPERTENSION
     Dosage: 25 MG
     Route: 048
     Dates: end: 202006
  6. FENOFIBRATE. [Concomitant]
     Active Substance: FENOFIBRATE
     Indication: DYSLIPIDAEMIA
     Dosage: 200 MG
     Route: 048

REACTIONS (1)
  - Inappropriate antidiuretic hormone secretion [Recovered/Resolved]

NARRATIVE: CASE EVENT DATE: 20200701
